FAERS Safety Report 4417415-8 (Version None)
Quarter: 2004Q3

REPORT INFORMATION
  Report Type: 
  Country: None (occurrence: None)
  Receive Date: 20040806
  Receipt Date: 20040202
  Transmission Date: 20050211
  Serious: Yes (Death)
  Sender: FDA-Public Use
  Company Number: PHBS2004PT01566

PATIENT
  Age: 34 Year
  Sex: Male

DRUGS (6)
  1. VOLTAREN [Suspect]
     Route: 048
     Dates: end: 20031212
  2. CETOROLAC, TROMETAMINE [Suspect]
     Dosage: 60 MG/DAY
     Route: 048
     Dates: start: 20031212, end: 20031213
  3. DEXAMETHASONE [Suspect]
     Dosage: 10 MG/DAY
     Route: 042
     Dates: start: 20031212, end: 20031213
  4. LORAZEPAM [Suspect]
     Dosage: 2.5 MG/DAY
     Route: 048
     Dates: start: 20031212, end: 20031213
  5. PARACETAMOL, TIOCOLQUICOSIDO [Concomitant]
     Route: 048
     Dates: end: 20031212
  6. AMFETAMINE [Concomitant]

REACTIONS (14)
  - AGITATION [None]
  - ALANINE AMINOTRANSFERASE INCREASED [None]
  - ASPARTATE AMINOTRANSFERASE INCREASED [None]
  - BLOOD ALKALINE PHOSPHATASE INCREASED [None]
  - BLOOD BILIRUBIN INCREASED [None]
  - BLOOD LACTATE DEHYDROGENASE INCREASED [None]
  - DEHYDRATION [None]
  - GAMMA-GLUTAMYLTRANSFERASE INCREASED [None]
  - HEPATITIS C [None]
  - HYPERLACTACIDAEMIA [None]
  - METABOLIC ACIDOSIS [None]
  - MULTI-ORGAN FAILURE [None]
  - RASH [None]
  - RHABDOMYOLYSIS [None]
